FAERS Safety Report 14963337 (Version 8)
Quarter: 2019Q1

REPORT INFORMATION
  Report Type: Spontaneous
  Country: CA (occurrence: CA)
  Receive Date: 20180601
  Receipt Date: 20190215
  Transmission Date: 20190417
  Serious: Yes (Hospitalization)
  Sender: FDA-Public Use
  Company Number: CA-CELLTRION INC.-2017CA002350

PATIENT

DRUGS (11)
  1. INFLECTRA [Suspect]
     Active Substance: INFLIXIMAB-DYYB
     Dosage: 500 MG, WEEKS 0, 2, 6 AND EVERY 8 WEEKS THEREAFTER
     Route: 042
     Dates: start: 20180622
  2. INFLECTRA [Suspect]
     Active Substance: INFLIXIMAB-DYYB
     Dosage: 500 MG, EVERY 6 WEEKS
     Route: 042
     Dates: start: 20181220
  3. METHOTREXATE. [Concomitant]
     Active Substance: METHOTREXATE
     Dosage: UNK
     Route: 065
     Dates: start: 2010
  4. INFLECTRA [Suspect]
     Active Substance: INFLIXIMAB-DYYB
     Dosage: 500 MG, EVERY 0, 2, 6 WEEKS THEN EVERY 8 WEEKS (RE-INDUCTION)
     Route: 042
     Dates: start: 20181220
  5. PREDNISONE. [Concomitant]
     Active Substance: PREDNISONE
     Dosage: UNK
     Route: 065
  6. INFLECTRA [Suspect]
     Active Substance: INFLIXIMAB-DYYB
     Indication: PSORIATIC ARTHROPATHY
     Dosage: 500 MG, EVERY 8 WEEKS FOR 12 MONTHS
     Route: 042
     Dates: start: 20170127
  7. INFLECTRA [Suspect]
     Active Substance: INFLIXIMAB-DYYB
     Dosage: 500 MG, EVERY 8 WEEKS FOR 12 MONTHS
     Route: 042
     Dates: start: 20171222, end: 20171222
  8. INFLECTRA [Suspect]
     Active Substance: INFLIXIMAB-DYYB
     Dosage: 500 MG, WEEKS 0, 2, 6 AND EVERY 8 WEEKS
     Route: 042
     Dates: start: 20180913
  9. INFLECTRA [Suspect]
     Active Substance: INFLIXIMAB-DYYB
     Dosage: 500 MG WEEKS 0, 2, 6 AND EVERY 8 WEEKS THERE AFTER;
     Route: 042
     Dates: start: 20180608, end: 20180608
  10. INFLECTRA [Suspect]
     Active Substance: INFLIXIMAB-DYYB
     Dosage: 500 MG WEEKS 0, 2, 6 AND EVERY 8 WEEKS THEREAFTER
     Route: 042
     Dates: start: 20180719
  11. INFLECTRA [Suspect]
     Active Substance: INFLIXIMAB-DYYB
     Dosage: 500 MG, EVERY 0, 2, 6 WEEKS, THEN EVERY 8 WEEKS
     Route: 042
     Dates: start: 20190201

REACTIONS (12)
  - Dizziness [Recovered/Resolved]
  - Wound [Recovering/Resolving]
  - Weight increased [Unknown]
  - Pruritus [Recovered/Resolved]
  - Malaise [Not Recovered/Not Resolved]
  - Tooth infection [Not Recovered/Not Resolved]
  - Limb injury [Recovering/Resolving]
  - Psoriatic arthropathy [Not Recovered/Not Resolved]
  - Herpes zoster [Unknown]
  - Product use issue [Unknown]
  - Product use issue [Unknown]
  - Impaired healing [Unknown]

NARRATIVE: CASE EVENT DATE: 20170127
